FAERS Safety Report 13949621 (Version 1)
Quarter: 2017Q3

REPORT INFORMATION
  Report Type: Spontaneous
  Country: US (occurrence: US)
  Receive Date: 20170908
  Receipt Date: 20170908
  Transmission Date: 20171128
  Serious: No
  Sender: FDA-Public Use
  Company Number: US-ADAPT PHARMA INC-2017ADP00015

PATIENT
  Age: 58 Year
  Sex: Male

DRUGS (5)
  1. OXYCODONE [Suspect]
     Active Substance: OXYCODONE
     Dosage: 5 TABLETS, ONCE IN THE AFTERNOON
     Route: 048
     Dates: start: 20170531, end: 20170531
  2. NARCAN [Suspect]
     Active Substance: NALOXONE HYDROCHLORIDE
     Indication: OVERDOSE
     Dosage: 4 MG, TWICE
     Route: 045
     Dates: start: 20170531, end: 20170531
  3. OXYCODONE [Suspect]
     Active Substance: OXYCODONE
     Dosage: UNK, 2X/DAY TO 3X/DAY
  4. MORPHINE [Suspect]
     Active Substance: MORPHINE
     Dosage: 4 TABLETS, ONCE IN THE MORNING
     Route: 048
     Dates: start: 20170531, end: 20170531
  5. MORPHINE [Suspect]
     Active Substance: MORPHINE
     Dosage: UNK, 2X/DAY

REACTIONS (2)
  - Cardiac flutter [Recovering/Resolving]
  - Defaecation urgency [Unknown]

NARRATIVE: CASE EVENT DATE: 20170531
